FAERS Safety Report 25441960 (Version 1)
Quarter: 2025Q2

REPORT INFORMATION
  Report Type: Report from Study
  Country: IT (occurrence: IT)
  Receive Date: 20250616
  Receipt Date: 20250616
  Transmission Date: 20250717
  Serious: Yes (Other)
  Sender: PFIZER
  Company Number: None

PATIENT
  Age: 61 Year
  Sex: Female
  Weight: 60 kg

DRUGS (2)
  1. CARBOPLATIN [Interacting]
     Active Substance: CARBOPLATIN
     Indication: Endometrial cancer stage III
     Dosage: 499.15 MG, EVERY 3 WEEKS, AUC 5
     Route: 042
     Dates: start: 20240509
  2. PACLITAXEL [Interacting]
     Active Substance: PACLITAXEL
     Indication: Endometrial cancer stage III
     Route: 042
     Dates: start: 20240509, end: 20240509

REACTIONS (5)
  - Drug hypersensitivity [Recovered/Resolved]
  - Flushing [Recovered/Resolved]
  - Chest pain [Recovered/Resolved]
  - Back pain [Recovered/Resolved]
  - Drug interaction [Recovered/Resolved]

NARRATIVE: CASE EVENT DATE: 20240509
